FAERS Safety Report 19080521 (Version 1)
Quarter: 2021Q1

REPORT INFORMATION
  Report Type: Spontaneous
  Country: FR (occurrence: FR)
  Receive Date: 20210331
  Receipt Date: 20210331
  Transmission Date: 20210420
  Serious: Yes (Other)
  Sender: FDA-Public Use
  Company Number: FR-BRISTOL-MYERS SQUIBB COMPANY-BMS-2021-029344

PATIENT
  Age: 62 Year
  Sex: Male

DRUGS (5)
  1. DETENSIEL [BISOPROLOL] [Suspect]
     Active Substance: BISOPROLOL
     Indication: ATRIAL FIBRILLATION
     Dosage: 5 MILLIGRAM, DAILY DOSE
     Route: 048
     Dates: start: 201503
  2. COVERAM [Suspect]
     Active Substance: AMLODIPINE\PERINDOPRIL
     Indication: ATRIAL FIBRILLATION
     Dosage: 1 DOSAGE FORM, DAILY DOSE
     Route: 048
     Dates: start: 201503
  3. ELIQUIS [Suspect]
     Active Substance: APIXABAN
     Indication: CEREBROVASCULAR ACCIDENT PROPHYLAXIS
     Dosage: 5 MILLIGRAM, DAILY DOSE
     Route: 048
     Dates: start: 201710
  4. METFORMINE [METFORMIN] [Suspect]
     Active Substance: METFORMIN HYDROCHLORIDE
     Indication: DIABETES MELLITUS
     Dosage: 3000 MILLIGRAM, DAILY DOSE
     Route: 048
     Dates: start: 201411
  5. FUROSEMIDE. [Suspect]
     Active Substance: FUROSEMIDE
     Indication: ATRIAL FIBRILLATION
     Dosage: 1 DOASGE FORM, DAILY DOSE
     Route: 048
     Dates: start: 201811

REACTIONS (2)
  - Pruritus [Not Recovered/Not Resolved]
  - Cholestatic liver injury [Not Recovered/Not Resolved]

NARRATIVE: CASE EVENT DATE: 20181114
